FAERS Safety Report 5161598-1 (Version None)
Quarter: 2006Q4

REPORT INFORMATION
  Report Type: 
  Country: None (occurrence: None)
  Receive Date: 20061130
  Receipt Date: 20060921
  Transmission Date: 20070319
  Serious: No
  Sender: FDA-Public Use
  Company Number: US-GLAXOSMITHKLINE-A0620989A

PATIENT
  Sex: Male

DRUGS (14)
  1. WELLBUTRIN XL [Suspect]
     Indication: DEPRESSION
     Dosage: 150MG PER DAY
     Route: 048
     Dates: start: 20040401
  2. LEVOXYL [Concomitant]
  3. GLUCOPHAGE [Concomitant]
  4. AMARYL [Concomitant]
  5. AMBIEN [Concomitant]
  6. DARVOCET [Concomitant]
  7. XANAX [Concomitant]
  8. LITHIUM CARBONATE [Concomitant]
  9. DILTIAZEM HCL [Concomitant]
  10. WARFARIN SODIUM [Concomitant]
  11. VIAGRA [Concomitant]
  12. LOMOTIL [Concomitant]
  13. TESTOSTERONE [Concomitant]
  14. ALBUTEROL [Concomitant]

REACTIONS (3)
  - DIARRHOEA [None]
  - DRUG INEFFECTIVE [None]
  - MEDICATION RESIDUE [None]
